FAERS Safety Report 6794518-4 (Version None)
Quarter: 2010Q2

REPORT INFORMATION
  Report Type: 
  Country: None (occurrence: None)
  Receive Date: 20100625
  Receipt Date: 20090507
  Transmission Date: 20101027
  Serious: No
  Sender: FDA-Public Use
  Company Number: A0784383A

PATIENT
  Sex: Male

DRUGS (1)
  1. VENTOLIN [Suspect]
     Indication: DRUG USE FOR UNKNOWN INDICATION
     Route: 065

REACTIONS (2)
  - PERIPHERAL COLDNESS [None]
  - THERMAL BURN [None]
